FAERS Safety Report 6111308-6 (Version None)
Quarter: 2009Q1

REPORT INFORMATION
  Report Type: 
  Country: None (occurrence: None)
  Receive Date: 20090310
  Receipt Date: 20090310
  Transmission Date: 20090719
  Serious: Yes (Life-Threatening, Hospitalization, Other)
  Sender: FDA-Public Use
  Company Number: None

PATIENT
  Age: 28 Year
  Sex: Female
  Weight: 99.7913 kg

DRUGS (1)
  1. TOPAMAX [Suspect]
     Indication: MIGRAINE
     Dosage: 25MG DAILY PO
     Route: 048
     Dates: start: 20071111, end: 20080203

REACTIONS (5)
  - FALL [None]
  - HEPATIC NEOPLASM [None]
  - HEPATITIS TOXIC [None]
  - MUSCLE SPASMS [None]
  - URINARY TRACT INFECTION [None]
